FAERS Safety Report 7807757-8 (Version None)
Quarter: 2011Q4

REPORT INFORMATION
  Report Type: 
  Country: None (occurrence: None)
  Receive Date: 20111011
  Receipt Date: 20101029
  Transmission Date: 20120403
  Serious: Yes (Other)
  Sender: FDA-Public Use
  Company Number: CHPA2010GB16944

PATIENT
  Sex: Male

DRUGS (2)
  1. NICOTINE [Suspect]
     Indication: SMOKING CESSATION THERAPY
     Dosage: 21 MG, QD
     Route: 062
     Dates: start: 20100921, end: 20101004
  2. LAMICTAL [Suspect]
     Dosage: UNK, UNK
     Route: 048
     Dates: start: 20090101

REACTIONS (1)
  - EPILEPSY [None]
